FAERS Safety Report 5265629-X (Version None)
Quarter: 2007Q1

REPORT INFORMATION
  Report Type: 
  Country: None (occurrence: None)
  Receive Date: 20070314
  Receipt Date: 20070228
  Transmission Date: 20070707
  Serious: Yes (Hospitalization)
  Sender: FDA-Public Use
  Company Number: DE-ALLERGAN-0702137US

PATIENT
  Sex: Male

DRUGS (5)
  1. ASPIRIN [Concomitant]
  2. LOCOL [Concomitant]
  3. METOPROLOL SUCCINATE [Concomitant]
  4. PANTOZOL [Concomitant]
  5. BOTOX [Suspect]
     Indication: BLEPHAROSPASM
     Dates: start: 20061221, end: 20061221

REACTIONS (1)
  - CAROTID ARTERY STENOSIS [None]
